FAERS Safety Report 7825532-5 (Version None)
Quarter: 2011Q4

REPORT INFORMATION
  Report Type: 
  Country: None (occurrence: None)
  Receive Date: 20111019
  Receipt Date: 20110923
  Transmission Date: 20120403
  Serious: Yes (Death, Hospitalization, Other)
  Sender: FDA-Public Use
  Company Number: US-BAXTER-2008BH010995

PATIENT
  Age: 72 Year
  Sex: Male
  Weight: 93 kg

DRUGS (30)
  1. HEPARIN SODIUM INJECTION [Suspect]
     Route: 042
  2. VENOFER [Concomitant]
     Indication: PRODUCT USED FOR UNKNOWN INDICATION
     Route: 042
  3. PLAVIX [Concomitant]
     Indication: PRODUCT USED FOR UNKNOWN INDICATION
     Route: 048
  4. HEPARIN SODIUM INJECTION [Suspect]
     Indication: HAEMODIALYSIS
     Route: 010
     Dates: start: 20070417
  5. SPIRIVA [Concomitant]
     Indication: PRODUCT USED FOR UNKNOWN INDICATION
     Route: 055
  6. CITALOPRAM HYDROBROMIDE [Concomitant]
     Indication: PRODUCT USED FOR UNKNOWN INDICATION
     Route: 048
  7. OXYGEN [Concomitant]
     Indication: OXYGEN SUPPLEMENTATION
  8. MUCINEX [Concomitant]
     Indication: PRODUCT USED FOR UNKNOWN INDICATION
     Route: 048
  9. PHOSLO [Concomitant]
     Indication: PRODUCT USED FOR UNKNOWN INDICATION
     Route: 048
  10. HEPARIN SODIUM INJECTION [Suspect]
     Route: 042
     Dates: start: 20071205, end: 20071224
  11. HEPARIN SODIUM 1,000 UNITS AND SODIUM CHLORIDE 0.9% [Suspect]
     Indication: PRODUCT USED FOR UNKNOWN INDICATION
     Route: 065
  12. ADVAIR DISKUS 100/50 [Concomitant]
     Indication: PRODUCT USED FOR UNKNOWN INDICATION
     Route: 055
  13. HEPARIN SODIUM INJECTION [Suspect]
     Route: 042
     Dates: start: 20080114, end: 20080116
  14. HEPARIN SODIUM INJECTION [Suspect]
     Route: 042
     Dates: start: 20080305, end: 20080312
  15. PREDNISONE [Concomitant]
     Indication: PRODUCT USED FOR UNKNOWN INDICATION
     Route: 048
  16. ASPIRIN [Concomitant]
     Indication: PRODUCT USED FOR UNKNOWN INDICATION
     Route: 048
  17. HEPARIN SODIUM INJECTION [Suspect]
     Route: 042
     Dates: start: 20080123, end: 20080213
  18. HEPARIN SODIUM INJECTION [Suspect]
     Indication: PRODUCT USED FOR UNKNOWN INDICATION
     Route: 065
  19. PROCRIT [Concomitant]
     Indication: PRODUCT USED FOR UNKNOWN INDICATION
     Route: 065
  20. ZEMPLAR [Concomitant]
     Indication: PRODUCT USED FOR UNKNOWN INDICATION
     Route: 065
  21. SOLU-MEDROL [Concomitant]
     Indication: PRODUCT USED FOR UNKNOWN INDICATION
     Route: 042
  22. MIRALAX [Concomitant]
     Indication: PRODUCT USED FOR UNKNOWN INDICATION
     Route: 048
  23. OXYCONTIN [Concomitant]
     Indication: PRODUCT USED FOR UNKNOWN INDICATION
     Route: 048
  24. VITAMIN B12 FOR INJECTION [Concomitant]
     Indication: PRODUCT USED FOR UNKNOWN INDICATION
     Route: 058
  25. COLACE [Concomitant]
     Indication: PRODUCT USED FOR UNKNOWN INDICATION
     Route: 048
  26. HEPARIN SODIUM INJECTION [Suspect]
     Route: 042
     Dates: start: 20071228, end: 20080107
  27. HEPARIN SODIUM INJECTION [Suspect]
     Route: 042
     Dates: start: 20080218, end: 20080222
  28. HEPARIN SODIUM INJECTION [Suspect]
     Route: 040
  29. LEVAQUIN [Concomitant]
     Indication: PRODUCT USED FOR UNKNOWN INDICATION
     Route: 048
  30. NORCO [Concomitant]
     Indication: PAIN
     Route: 048

REACTIONS (37)
  - DIARRHOEA [None]
  - DIZZINESS [None]
  - PAIN IN EXTREMITY [None]
  - MALAISE [None]
  - RESPIRATORY FAILURE [None]
  - COMPRESSION FRACTURE [None]
  - GASTRITIS [None]
  - PULMONARY OEDEMA [None]
  - THROMBOCYTOPENIA [None]
  - JOINT DISLOCATION [None]
  - HYPOPNOEA [None]
  - ENCEPHALOMALACIA [None]
  - FATIGUE [None]
  - HYPOTENSION [None]
  - CARDIAC OUTPUT DECREASED [None]
  - MUSCLE TWITCHING [None]
  - COLD SWEAT [None]
  - HEADACHE [None]
  - CHRONIC OBSTRUCTIVE PULMONARY DISEASE [None]
  - RENAL FAILURE CHRONIC [None]
  - ASTHENIA [None]
  - DUODENAL ULCER [None]
  - CARDIAC ARREST [None]
  - SEPTIC SHOCK [None]
  - HYPERCOAGULATION [None]
  - SYNCOPE [None]
  - VOMITING [None]
  - ANAEMIA [None]
  - HEPATIC LESION [None]
  - METABOLIC ACIDOSIS [None]
  - DYSPNOEA [None]
  - ARRHYTHMIA [None]
  - ISCHAEMIC HEPATITIS [None]
  - MYOCARDIAL INFARCTION [None]
  - GASTROINTESTINAL HAEMORRHAGE [None]
  - FALL [None]
  - NEUROPATHY PERIPHERAL [None]
